FAERS Safety Report 5467724-9 (Version None)
Quarter: 2007Q3

REPORT INFORMATION
  Report Type: 
  Country: None (occurrence: None)
  Receive Date: 20070814
  Receipt Date: 20070704
  Transmission Date: 20080115
  Serious: Yes (Other)
  Sender: FDA-Public Use
  Company Number: 200713862US

PATIENT
  Age: 62 Year
  Sex: Male
  Weight: 86.36 kg

DRUGS (7)
  1. APIDRA [Suspect]
     Indication: TYPE 2 DIABETES MELLITUS
     Dosage: SLIDING SCALE ABOUT 1-14 U
     Dates: start: 20070518, end: 20070521
  2. APIDRA [Suspect]
     Indication: TYPE 2 DIABETES MELLITUS
     Dosage: SLIDING SCALE 0-24 U
     Dates: start: 20070523
  3. OPTICLIK [Suspect]
     Indication: TYPE 2 DIABETES MELLITUS
     Dates: start: 20070518
  4. LANTUS [Concomitant]
  5. PLAVIX [Concomitant]
  6. ASPIRIN [Concomitant]
  7. ^CHOLESTEROL MEDICATION^ NOS [Concomitant]

REACTIONS (2)
  - DRUG INEFFECTIVE [None]
  - HYPERGLYCAEMIA [None]
